FAERS Safety Report 7075526-5 (Version None)
Quarter: 2010Q4

REPORT INFORMATION
  Report Type: 
  Country: None (occurrence: None)
  Receive Date: 20101030
  Receipt Date: 20100922
  Transmission Date: 20110411
  Serious: No
  Sender: FDA-Public Use
  Company Number: US-WYE-H17738110

PATIENT
  Age: 56 Year
  Sex: Female
  Weight: 56.75 kg

DRUGS (2)
  1. ADVIL PM [Suspect]
     Indication: EAR PAIN
     Dosage: 2 TABLETS, EACH TAKEN FEW HOURS APART
     Route: 048
     Dates: start: 20100920, end: 20100920
  2. ADVIL PM [Suspect]
     Indication: SLEEP DISORDER

REACTIONS (2)
  - BLISTER [None]
  - EYE DISORDER [None]
